FAERS Safety Report 19035991 (Version 2)
Quarter: 2021Q3

REPORT INFORMATION
  Report Type: Report from Study
  Country: US (occurrence: US)
  Receive Date: 20210321
  Receipt Date: 20210712
  Transmission Date: 20211014
  Serious: Yes (Other)
  Sender: FDA-Public Use
  Company Number: US-TEVA-2021-US-1890759

PATIENT
  Age: 58 Year
  Sex: Male

DRUGS (4)
  1. DEXAMETHASONE. [Concomitant]
     Active Substance: DEXAMETHASONE
     Indication: PLASMA CELL MYELOMA
     Dosage: 40MG ONCE A WEEK
     Route: 065
     Dates: start: 201909
  2. BORTEZOMIB. [Concomitant]
     Active Substance: BORTEZOMIB
     Indication: PLASMA CELL MYELOMA
     Route: 065
     Dates: start: 201909
  3. IMATINIB. [Suspect]
     Active Substance: IMATINIB MESYLATE
     Indication: CHRONIC MYELOID LEUKAEMIA RECURRENT
     Dosage: 400 MILLIGRAM DAILY;
     Route: 065
  4. THALIDOMIDE [Suspect]
     Active Substance: THALIDOMIDE
     Indication: PLASMA CELL MYELOMA
     Dosage: 50 MILLIGRAM DAILY; CYCLE OF 21 DAY FOLLOWED BY 7 DAYS OFF
     Route: 065
     Dates: start: 201909

REACTIONS (4)
  - Plasma cell myeloma [Unknown]
  - Rash pruritic [Recovered/Resolved]
  - Rash morbilliform [Recovered/Resolved]
  - Hypergammaglobulinaemia benign monoclonal [Unknown]

NARRATIVE: CASE EVENT DATE: 2019
